FAERS Safety Report 14224072 (Version 1)
Quarter: 2017Q4

REPORT INFORMATION
  Report Type: Spontaneous
  Country: US (occurrence: US)
  Receive Date: 20171125
  Receipt Date: 20171125
  Transmission Date: 20180321
  Serious: Yes (Hospitalization)
  Sender: FDA-Public Use
  Company Number: None

PATIENT
  Age: 63 Year
  Sex: Female

DRUGS (1)
  1. VICTOZA [Suspect]
     Active Substance: LIRAGLUTIDE
     Indication: DIABETES MELLITUS
     Dates: start: 20170731, end: 20171108

REACTIONS (5)
  - Loss of consciousness [None]
  - Pancreatitis [None]
  - Vomiting [None]
  - Blood glucose increased [None]
  - Diarrhoea [None]

NARRATIVE: CASE EVENT DATE: 20171109
